FAERS Safety Report 15038082 (Version 3)
Quarter: 2019Q2

REPORT INFORMATION
  Report Type: Spontaneous
  Country: US (occurrence: US)
  Receive Date: 20180620
  Receipt Date: 20190516
  Transmission Date: 20190711
  Serious: Yes (Hospitalization, Other)
  Sender: FDA-Public Use
  Company Number: US-ASTRAZENECA-2018SE77512

PATIENT
  Age: 724 Month
  Sex: Female

DRUGS (48)
  1. OMEPRAZOLE. [Suspect]
     Active Substance: OMEPRAZOLE
     Indication: GASTROOESOPHAGEAL REFLUX DISEASE
     Route: 065
     Dates: start: 201401, end: 201412
  2. PANTOPRAZOLE [Suspect]
     Active Substance: PANTOPRAZOLE
     Indication: GASTROOESOPHAGEAL REFLUX DISEASE
     Route: 065
     Dates: start: 20171101
  3. HYDROCODONE [Concomitant]
     Active Substance: HYDROCODONE
  4. PHENTERMINE. [Concomitant]
     Active Substance: PHENTERMINE
  5. ADVAIR DISKUS [Concomitant]
     Active Substance: FLUTICASONE PROPIONATE\SALMETEROL XINAFOATE
  6. MONTELUKAST [Concomitant]
     Active Substance: MONTELUKAST SODIUM
  7. MODAFINIL. [Concomitant]
     Active Substance: MODAFINIL
  8. TOPIRAMATE. [Concomitant]
     Active Substance: TOPIRAMATE
     Indication: HYPERTENSION
  9. LEVOFLOXACIN. [Concomitant]
     Active Substance: LEVOFLOXACIN
     Indication: HYPERTENSION
  10. NAPROXEN. [Concomitant]
     Active Substance: NAPROXEN
     Indication: HYPERTENSION
  11. VITAMIN B12 [Concomitant]
     Active Substance: CYANOCOBALAMIN
  12. GABAPENTIN. [Concomitant]
     Active Substance: GABAPENTIN
  13. CLOTRIMAZOLE. [Concomitant]
     Active Substance: CLOTRIMAZOLE
  14. ALBUTEROL. [Concomitant]
     Active Substance: ALBUTEROL
     Indication: HYPERTENSION
  15. TORSEMIDE. [Concomitant]
     Active Substance: TORSEMIDE
     Indication: OEDEMA
  16. BIOTIN [Concomitant]
     Active Substance: BIOTIN
  17. FUROSEMIDE. [Concomitant]
     Active Substance: FUROSEMIDE
  18. TRAMADOL. [Concomitant]
     Active Substance: TRAMADOL
  19. GABAPENTIN. [Concomitant]
     Active Substance: GABAPENTIN
  20. CLOTRIMAZOLE. [Concomitant]
     Active Substance: CLOTRIMAZOLE
     Indication: HYPERTENSION
  21. PANTOPRAZOLE [Suspect]
     Active Substance: PANTOPRAZOLE
     Indication: GASTROOESOPHAGEAL REFLUX DISEASE
     Route: 065
     Dates: start: 201510, end: 201610
  22. PROAIR HFA [Concomitant]
     Active Substance: ALBUTEROL SULFATE
  23. DULOXETINE. [Concomitant]
     Active Substance: DULOXETINE
  24. COLCRYS [Concomitant]
     Active Substance: COLCHICINE
     Indication: HYPERTENSION
  25. PROVIGIL [Concomitant]
     Active Substance: MODAFINIL
     Indication: HYPERTENSION
  26. NEXIUM [Suspect]
     Active Substance: ESOMEPRAZOLE MAGNESIUM
     Indication: GASTROOESOPHAGEAL REFLUX DISEASE
     Route: 048
     Dates: start: 200505, end: 201610
  27. NEXIUM [Suspect]
     Active Substance: ESOMEPRAZOLE MAGNESIUM
     Indication: GASTROOESOPHAGEAL REFLUX DISEASE
     Route: 048
     Dates: start: 200505, end: 201506
  28. NEXIUM [Suspect]
     Active Substance: ESOMEPRAZOLE MAGNESIUM
     Indication: GASTROOESOPHAGEAL REFLUX DISEASE
     Route: 048
     Dates: start: 20160624
  29. CYMBALTA [Concomitant]
     Active Substance: DULOXETINE HYDROCHLORIDE
     Indication: DEPRESSION
  30. ACCOLATE [Concomitant]
     Active Substance: ZAFIRLUKAST
     Indication: ASTHMA
  31. COLCHICINE. [Concomitant]
     Active Substance: COLCHICINE
  32. POTASSIUM CHLORIDE. [Concomitant]
     Active Substance: POTASSIUM CHLORIDE
  33. PREDNISONE. [Concomitant]
     Active Substance: PREDNISONE
  34. BENZTROPINE. [Concomitant]
     Active Substance: BENZTROPINE
     Indication: HYPERTENSION
  35. ALLEGRA [Concomitant]
     Active Substance: FEXOFENADINE HYDROCHLORIDE
     Indication: HYPERTENSION
  36. LIPITOR [Concomitant]
     Active Substance: ATORVASTATIN CALCIUM
     Indication: BLOOD CHOLESTEROL INCREASED
  37. BENICAR [Concomitant]
     Active Substance: OLMESARTAN MEDOXOMIL
     Indication: HYPERTENSION
  38. SIMVASTATIN. [Concomitant]
     Active Substance: SIMVASTATIN
  39. CALCITRIOL. [Concomitant]
     Active Substance: CALCITRIOL
  40. DELESTROGEN [Concomitant]
     Active Substance: ESTRADIOL VALERATE
     Indication: HYPERTENSION
  41. NEXIUM [Suspect]
     Active Substance: ESOMEPRAZOLE MAGNESIUM
     Indication: GASTROOESOPHAGEAL REFLUX DISEASE
     Route: 048
     Dates: start: 20160825
  42. FERROUS SULFATE. [Concomitant]
     Active Substance: FERROUS SULFATE
  43. ALLOPURINOL. [Concomitant]
     Active Substance: ALLOPURINOL
  44. ESTRACE [Concomitant]
     Active Substance: ESTRADIOL
  45. LEVEMIR FLEX [Concomitant]
  46. COLCHICINE. [Concomitant]
     Active Substance: COLCHICINE
  47. BUSPIRONE [Concomitant]
     Active Substance: BUSPIRONE HYDROCHLORIDE
  48. VENTOLIN HFA [Concomitant]
     Active Substance: ALBUTEROL SULFATE

REACTIONS (5)
  - Chronic kidney disease [Not Recovered/Not Resolved]
  - Nephropathy [Unknown]
  - Secondary hyperthyroidism [Unknown]
  - Chronic kidney disease-mineral and bone disorder [Unknown]
  - Acute kidney injury [Unknown]

NARRATIVE: CASE EVENT DATE: 200706
